FAERS Safety Report 17592456 (Version 2)
Quarter: 2020Q2

REPORT INFORMATION
  Report Type: Spontaneous
  Country: GB (occurrence: GB)
  Receive Date: 20200327
  Receipt Date: 20200408
  Transmission Date: 20200713
  Serious: Yes (Hospitalization, Disabling, Other)
  Sender: FDA-Public Use
  Company Number: NVSC2020GB082514

PATIENT
  Age: 18 Year
  Sex: Female

DRUGS (15)
  1. THIOPENTONE [Suspect]
     Active Substance: THIOPENTAL SODIUM
     Indication: ANAESTHESIA
     Dosage: 7 MG/KG, QH
     Route: 042
  2. LACOSAMIDE. [Suspect]
     Active Substance: LACOSAMIDE
     Indication: STATUS EPILEPTICUS
     Dosage: UNK
     Route: 065
  3. FENTANYL. [Suspect]
     Active Substance: FENTANYL
     Indication: ANAESTHESIA
     Dosage: 200 UG, QH
     Route: 065
  4. METHYLPREDNISOLONE. [Suspect]
     Active Substance: METHYLPREDNISOLONE
     Indication: STATUS EPILEPTICUS
     Dosage: UNK
     Route: 042
  5. MIDAZOLAM. [Suspect]
     Active Substance: MIDAZOLAM
     Indication: ANAESTHESIA
     Dosage: 20 MG, QH
     Route: 065
  6. MIDAZOLAM. [Suspect]
     Active Substance: MIDAZOLAM
     Indication: STATUS EPILEPTICUS
     Dosage: UP TO 20 MG/HR
     Route: 065
  7. LEVETIRACETAM. [Suspect]
     Active Substance: LEVETIRACETAM
     Indication: STATUS EPILEPTICUS
     Dosage: UNK
     Route: 065
  8. PHENYTOIN. [Suspect]
     Active Substance: PHENYTOIN
     Indication: STATUS EPILEPTICUS
     Dosage: UNK
     Route: 065
  9. KETAMINE [Suspect]
     Active Substance: KETAMINE
     Indication: ANAESTHESIA
     Dosage: 20 MG/KG, QH
     Route: 065
  10. KETAMINE [Suspect]
     Active Substance: KETAMINE
     Indication: STATUS EPILEPTICUS
  11. PHENOBARBITONE [Suspect]
     Active Substance: PHENOBARBITAL
     Indication: STATUS EPILEPTICUS
     Dosage: UNK
     Route: 065
  12. FENTANYL. [Suspect]
     Active Substance: FENTANYL
     Indication: STATUS EPILEPTICUS
  13. PROPOFOL. [Suspect]
     Active Substance: PROPOFOL
     Indication: ANAESTHESIA
     Dosage: UNK
     Route: 065
  14. PROPOFOL. [Suspect]
     Active Substance: PROPOFOL
     Indication: STATUS EPILEPTICUS
  15. THIOPENTONE [Suspect]
     Active Substance: THIOPENTAL SODIUM
     Indication: STATUS EPILEPTICUS

REACTIONS (19)
  - Neuromyopathy [Unknown]
  - Optic neuropathy [Unknown]
  - Liver function test abnormal [Unknown]
  - Deep vein thrombosis [Unknown]
  - Hypokinesia [Unknown]
  - Hypoglycaemia [Unknown]
  - Visual acuity reduced [Unknown]
  - Product use in unapproved indication [Unknown]
  - Hypokalaemia [Unknown]
  - Cognitive disorder [Unknown]
  - Pelvic venous thrombosis [Unknown]
  - Ventricular hypokinesia [Unknown]
  - Infection [Unknown]
  - Delirium [Unknown]
  - Euthyroid sick syndrome [Unknown]
  - Intensive care unit delirium [Unknown]
  - Intensive care unit acquired weakness [Unknown]
  - Partial seizures [Unknown]
  - Memory impairment [Unknown]
